FAERS Safety Report 4375930-X (Version None)
Quarter: 2004Q2

REPORT INFORMATION
  Report Type: 
  Country: None (occurrence: None)
  Receive Date: 20040607
  Receipt Date: 20040601
  Transmission Date: 20050107
  Serious: Yes (Life-Threatening, Hospitalization)
  Sender: FDA-Public Use
  Company Number: NLWYE259518AUG03

PATIENT
  Age: 62 Year
  Sex: Male

DRUGS (6)
  1. EFFEXOR [Suspect]
     Indication: ANXIETY
     Dosage: 37.5 MG 1X PER 1 DAY
     Route: 048
     Dates: start: 20030501, end: 20030701
  2. EFFEXOR [Suspect]
     Indication: DEPRESSION
     Dosage: 37.5 MG 1X PER 1 DAY
     Route: 048
     Dates: start: 20030501, end: 20030701
  3. PRAZOSIN GITS [Concomitant]
  4. BISOPROLOL FUMARATE [Concomitant]
  5. OXAZEPAM [Concomitant]
  6. LORMETAZEPAM (LORMETAZEPAM) [Concomitant]

REACTIONS (3)
  - ATRIAL FIBRILLATION [None]
  - CONDITION AGGRAVATED [None]
  - HYPERTENSION [None]
